FAERS Safety Report 6326980-5 (Version None)
Quarter: 2009Q3

REPORT INFORMATION
  Report Type: 
  Country: None (occurrence: None)
  Receive Date: 20090825
  Receipt Date: 20090814
  Transmission Date: 20100115
  Serious: Yes (Other)
  Sender: FDA-Public Use
  Company Number: US-JNJFOC-20090500785

PATIENT
  Sex: Female
  Weight: 66.68 kg

DRUGS (4)
  1. INFLIXIMAB [Suspect]
     Route: 042
  2. INFLIXIMAB [Suspect]
     Indication: PSORIASIS
     Route: 042
  3. CORTICOSTEROID (UNSPECIFIED) [Concomitant]
  4. CYCLOSPORINE [Concomitant]

REACTIONS (2)
  - INFUSION RELATED REACTION [None]
  - INFUSION SITE HYPERSENSITIVITY [None]
